FAERS Safety Report 6097674-9 (Version None)
Quarter: 2009Q1

REPORT INFORMATION
  Report Type: 
  Country: None (occurrence: None)
  Receive Date: 20090227
  Receipt Date: 20090216
  Transmission Date: 20090719
  Serious: Yes (Other)
  Sender: FDA-Public Use
  Company Number: US-PFIZER INC-2008075349

PATIENT
  Sex: Female
  Weight: 80.272 kg

DRUGS (8)
  1. CHANTIX [Suspect]
     Indication: SMOKING CESSATION THERAPY
     Dosage: 0.5 MG, 1X/DAY
     Route: 048
     Dates: start: 20080701
  2. PALIPERIDONE [Concomitant]
  3. DEPAKOTE [Concomitant]
  4. KLONOPIN [Concomitant]
  5. WELLBUTRIN [Concomitant]
  6. TOPAMAX [Concomitant]
     Dosage: UNK
  7. XANAX [Concomitant]
     Dosage: UNK
  8. NICOTINE [Concomitant]
     Dosage: UNK
     Route: 062

REACTIONS (4)
  - DEPRESSED MOOD [None]
  - HALLUCINATION [None]
  - HALLUCINATION, AUDITORY [None]
  - SUICIDAL IDEATION [None]
